FAERS Safety Report 8850188 (Version 1)
Quarter: 2012Q4

REPORT INFORMATION
  Report Type: 
  Country: FR (occurrence: FR)
  Receive Date: 20121019
  Receipt Date: 20121019
  Transmission Date: 20130627
  Serious: Yes (Hospitalization)
  Sender: FDA-Public Use
  Company Number: FR-EISAI INC-E3810-05998-SPO-FR

PATIENT
  Age: 84 Year
  Sex: Female

DRUGS (6)
  1. PARIET (RABEPRAZOLE) [Suspect]
     Route: 048
     Dates: start: 1990, end: 20120821
  2. INDAPAMIDE/PERINDOPRIL [Suspect]
     Route: 048
     Dates: start: 2010
  3. DIAMICRON [Suspect]
     Route: 048
     Dates: start: 1990
  4. GLUCOPHAGE [Suspect]
     Route: 048
     Dates: start: 1990
  5. AMLOR [Concomitant]
     Route: 048
  6. FENOFIBRATE [Concomitant]
     Route: 048

REACTIONS (2)
  - Hypokalaemia [Recovered/Resolved]
  - Hyponatraemia [Unknown]
